FAERS Safety Report 12741540 (Version 2)
Quarter: 2016Q4

REPORT INFORMATION
  Report Type: Report from Study
  Country: US (occurrence: US)
  Receive Date: 20160914
  Receipt Date: 20161117
  Transmission Date: 20170207
  Serious: Yes (Other)
  Sender: FDA-Public Use
  Company Number: US-AMGEN-USASP2016112969

PATIENT
  Age: 56 Year
  Sex: Female
  Weight: 79.18 kg

DRUGS (19)
  1. REPATHA [Suspect]
     Active Substance: EVOLOCUMAB
     Indication: MYOCARDIAL ISCHAEMIA
  2. REPATHA [Suspect]
     Active Substance: EVOLOCUMAB
     Indication: HYPERCHOLESTEROLAEMIA
     Dosage: 140 MG, Q2WK
     Route: 058
     Dates: start: 20160415, end: 20160531
  3. BACLOFEN. [Concomitant]
     Active Substance: BACLOFEN
     Dosage: 20 MG, TID
     Route: 048
  4. ALBUTEROL. [Concomitant]
     Active Substance: ALBUTEROL
  5. CENTRUM [Concomitant]
     Active Substance: VITAMINS
  6. WELCHOL [Concomitant]
     Active Substance: COLESEVELAM HYDROCHLORIDE
     Dosage: 1875 MG (625 MG, 3 TABLETS), BID
     Route: 048
  7. SILVER [Concomitant]
     Active Substance: SILVER
  8. ADVAIR HFA [Concomitant]
     Active Substance: FLUTICASONE PROPIONATE\SALMETEROL XINAFOATE
     Dosage: 1 DF, BID (250 MCG-50 MCG/DOSE)
  9. DILAUDID [Concomitant]
     Active Substance: HYDROMORPHONE HYDROCHLORIDE
     Dosage: 2 MG, TID
     Route: 048
  10. GEMFIBROZIL. [Concomitant]
     Active Substance: GEMFIBROZIL
     Dosage: 600 MG, BID 30 MINUTES BEFORE MORNING AND EVENING MEAL
     Route: 048
  11. MULTI VITAMINS + MINERALS [Concomitant]
  12. VITAMIN C [Concomitant]
     Active Substance: ASCORBIC ACID
  13. PRILOSEC [Concomitant]
     Active Substance: OMEPRAZOLE MAGNESIUM
     Dosage: 40 MG, QD (BEFORE MEAL)
     Route: 048
  14. REPATHA [Suspect]
     Active Substance: EVOLOCUMAB
     Indication: TYPE V HYPERLIPIDAEMIA
  15. TOPROL XL [Concomitant]
     Active Substance: METOPROLOL SUCCINATE
     Dosage: 25 MG, QD
     Route: 048
  16. PLAVIX [Concomitant]
     Active Substance: CLOPIDOGREL BISULFATE
     Dosage: 75 MG, QD
     Route: 048
  17. ZETIA [Concomitant]
     Active Substance: EZETIMIBE
     Dosage: 10 MG, QD
     Route: 048
  18. NITROGLYCERIN. [Concomitant]
     Active Substance: NITROGLYCERIN
     Dosage: 0.4 MG, UNK
     Route: 060
  19. ASPIRIN. [Concomitant]
     Active Substance: ASPIRIN
     Dosage: 162 MG, QD
     Route: 048

REACTIONS (9)
  - Nocturia [Unknown]
  - Contusion [Recovered/Resolved]
  - Reflux gastritis [Unknown]
  - Peripheral swelling [Recovered/Resolved]
  - Vascular rupture [Recovered/Resolved]
  - Pain in extremity [Not Recovered/Not Resolved]
  - Hyperhidrosis [Unknown]
  - Ecchymosis [Unknown]
  - Snoring [Unknown]

NARRATIVE: CASE EVENT DATE: 20160531
